FAERS Safety Report 6821505-X (Version None)
Quarter: 2010Q3

REPORT INFORMATION
  Report Type: 
  Country: None (occurrence: None)
  Receive Date: 20100707
  Receipt Date: 20100628
  Transmission Date: 20110219
  Serious: Yes (Other)
  Sender: FDA-Public Use
  Company Number: US-ROCHE-674707

PATIENT
  Sex: Female
  Weight: 69.9 kg

DRUGS (10)
  1. ACCUTANE [Suspect]
     Dosage: EVERY OTHER DAY
     Route: 065
     Dates: start: 20021029, end: 20030201
  2. AMNESTEEM [Suspect]
     Route: 065
     Dates: start: 20031115, end: 20031215
  3. AMPICILLIN TRIHYDRATE [Concomitant]
  4. BUTALBITAL [Concomitant]
  5. DIFLUCAN [Concomitant]
  6. IBUPROFEN [Concomitant]
  7. APAP/PROPOXYPHENE NAPSYLATE [Concomitant]
  8. ALEVE (CAPLET) [Concomitant]
  9. ADVIL LIQUI-GELS [Concomitant]
  10. NAPROSYN [Concomitant]

REACTIONS (28)
  - ANXIETY [None]
  - ARTHRALGIA [None]
  - ARTHRITIS [None]
  - COLITIS ULCERATIVE [None]
  - CONJUNCTIVAL HAEMORRHAGE [None]
  - CONSTIPATION [None]
  - CROHN'S DISEASE [None]
  - DEPRESSED MOOD [None]
  - DEPRESSION [None]
  - DYSMENORRHOEA [None]
  - ECZEMA [None]
  - EYELID BLEEDING [None]
  - FRACTURE [None]
  - GALLBLADDER DISORDER [None]
  - GASTROENTERITIS [None]
  - HOMELESS [None]
  - INFLAMMATORY BOWEL DISEASE [None]
  - MOUTH ULCERATION [None]
  - ORAL HERPES [None]
  - OVARIAN CYST [None]
  - PANIC ATTACK [None]
  - PHOBIA [None]
  - POST CONCUSSION SYNDROME [None]
  - RECTAL HAEMORRHAGE [None]
  - RESTLESSNESS [None]
  - SLEEP DISORDER [None]
  - SYNCOPE [None]
  - VISION BLURRED [None]
